FAERS Safety Report 9927210 (Version 2)
Quarter: 2014Q2

REPORT INFORMATION
  Report Type: Spontaneous
  Country: US (occurrence: US)
  Receive Date: 20140226
  Receipt Date: 20140501
  Transmission Date: 20141212
  Serious: No
  Sender: FDA-Public Use
  Company Number: US-AMGEN-USASP2014007680

PATIENT
  Age: 51 Year
  Sex: Female
  Weight: 82.36 kg

DRUGS (6)
  1. ENBREL [Suspect]
     Indication: RHEUMATOID ARTHRITIS
     Dosage: 50 MG, QWK
     Route: 058
     Dates: start: 20120606
  2. ACID REDUCER                       /00397401/ [Concomitant]
     Dosage: 75 MG, QD  PRN
     Route: 048
  3. FOLIC ACID [Concomitant]
     Dosage: 1 MG, ORAL PRN 90
     Route: 048
  4. HUMIRA [Concomitant]
     Dosage: 40 MG, Q2WK 6 PENS
     Route: 058
  5. IBUPROFEN [Concomitant]
     Dosage: 800 MG, UNK
     Route: 048
  6. METHOTREXATE [Concomitant]
     Dosage: 2.5 MG, QWK (TAKE 6 TABLETS PO ONCE A WEEK 72)
     Route: 048

REACTIONS (5)
  - Dry skin [Not Recovered/Not Resolved]
  - Rash pruritic [Not Recovered/Not Resolved]
  - Arthralgia [Unknown]
  - Osteoarthritis [Unknown]
  - Cyst [Unknown]
